FAERS Safety Report 13577390 (Version 2)
Quarter: 2017Q2

REPORT INFORMATION
  Report Type: Spontaneous
  Country: US (occurrence: US)
  Receive Date: 20170524
  Receipt Date: 20170608
  Transmission Date: 20170830
  Serious: Yes (Hospitalization, Other)
  Sender: FDA-Public Use
  Company Number: US-SAOL THERAPEUTICS-2017SAO00896

PATIENT
  Age: 56 Year
  Sex: Male

DRUGS (1)
  1. BACLOFEN. [Suspect]
     Active Substance: BACLOFEN
     Route: 037

REACTIONS (4)
  - Staphylococcal infection [Recovered/Resolved]
  - Neoplasm skin [Unknown]
  - Implant site infection [Recovered/Resolved]
  - Implant site erosion [Recovered/Resolved]

NARRATIVE: CASE EVENT DATE: 201704
